FAERS Safety Report 6961915-3 (Version None)
Quarter: 2010Q3

REPORT INFORMATION
  Report Type: 
  Country: None (occurrence: None)
  Receive Date: 20100902
  Receipt Date: 20100825
  Transmission Date: 20110219
  Serious: No
  Sender: FDA-Public Use
  Company Number: US-BIOGENIDEC-2010BI029810

PATIENT
  Age: 39 Year
  Sex: Female

DRUGS (4)
  1. TYSABRI [Suspect]
     Indication: MULTIPLE SCLEROSIS
     Route: 042
     Dates: start: 20091230
  2. MEDICATIONS [NOS] [Concomitant]
  3. NEURONTIN [Concomitant]
  4. KLONOPIN [Concomitant]

REACTIONS (2)
  - ANGER [None]
  - BURNOUT SYNDROME [None]
